FAERS Safety Report 25735540 (Version 1)
Quarter: 2025Q3

REPORT INFORMATION
  Report Type: Spontaneous
  Country: GB (occurrence: GB)
  Receive Date: 20250828
  Receipt Date: 20250828
  Transmission Date: 20251021
  Serious: Yes (Hospitalization, Other)
  Sender: SAMSUNG BIOEPIS
  Company Number: None

PATIENT
  Age: 79 Year
  Sex: Female

DRUGS (9)
  1. INFLIXIMAB [Suspect]
     Active Substance: INFLIXIMAB
     Indication: Product used for unknown indication
  2. AMLODIPINE [Concomitant]
     Active Substance: AMLODIPINE BESYLATE
     Indication: Product used for unknown indication
  3. ATORVASTATIN [Concomitant]
     Active Substance: ATORVASTATIN
     Indication: Product used for unknown indication
  4. HYDROXYCHLOROQUINE [Concomitant]
     Active Substance: HYDROXYCHLOROQUINE
     Indication: Product used for unknown indication
     Route: 050
  5. MERCURY PHARMS FERROUS FUMARATE [Concomitant]
     Indication: Product used for unknown indication
  6. OMEPRAZOLE [Concomitant]
     Active Substance: OMEPRAZOLE
     Indication: Product used for unknown indication
  7. ACETAMINOPHEN [Concomitant]
     Active Substance: ACETAMINOPHEN
     Indication: Product used for unknown indication
     Route: 050
  8. NITROFURANTOIN [Concomitant]
     Active Substance: NITROFURANTOIN
     Indication: Product used for unknown indication
  9. RITUXIMAB [Concomitant]
     Active Substance: RITUXIMAB
     Indication: Product used for unknown indication

REACTIONS (1)
  - Hyponatraemia [Recovered/Resolved]
